FAERS Safety Report 21053566 (Version 1)
Quarter: 2022Q3

REPORT INFORMATION
  Report Type: Spontaneous
  Country: CN (occurrence: CN)
  Receive Date: 20220707
  Receipt Date: 20220707
  Transmission Date: 20221026
  Serious: Yes (Death, Other)
  Sender: FDA-Public Use
  Company Number: CN-SLATE RUN PHARMACEUTICALS-22CN001184

PATIENT

DRUGS (13)
  1. VORICONAZOLE [Suspect]
     Active Substance: VORICONAZOLE
     Indication: Product used for unknown indication
     Dosage: UNK
     Route: 048
     Dates: start: 20220709
  2. VORICONAZOLE [Suspect]
     Active Substance: VORICONAZOLE
     Dosage: UNK
     Dates: start: 20190629, end: 20190709
  3. GANCICLOVIR [Suspect]
     Active Substance: GANCICLOVIR
     Indication: Product used for unknown indication
     Dosage: UNK
     Dates: start: 20190624
  4. TRIAMCINOLONE ACETONIDE [Concomitant]
     Active Substance: TRIAMCINOLONE ACETONIDE
     Indication: Prophylaxis against transplant rejection
     Dosage: 3 MILLIGRAM, Q 12 HR
     Dates: start: 2019
  5. MYCOPHENOLATE MOFETIL [Concomitant]
     Active Substance: MYCOPHENOLATE MOFETIL
     Indication: Prophylaxis against transplant rejection
     Dosage: 0.5 GRAM, Q 12 HR
     Dates: start: 2019
  6. PREDNISONE [Concomitant]
     Active Substance: PREDNISONE
     Indication: Prophylaxis against transplant rejection
     Dosage: 30 MILLIGRAM, QD
     Dates: start: 2019
  7. CEFOPERAZONE SODIUM [Concomitant]
     Active Substance: CEFOPERAZONE SODIUM
     Indication: Product used for unknown indication
     Dosage: UNK
     Dates: start: 20190624
  8. SULBACTAM SODIUM [Concomitant]
     Active Substance: SULBACTAM SODIUM
     Indication: Product used for unknown indication
     Dosage: UNK
     Dates: start: 20190624
  9. CASPOFUNGIN [Concomitant]
     Active Substance: CASPOFUNGIN
     Indication: Product used for unknown indication
     Dosage: UNK
     Dates: start: 20190624
  10. SULFAMETHOXAZOLE [Concomitant]
     Active Substance: SULFAMETHOXAZOLE
     Indication: Product used for unknown indication
     Dosage: UNK
     Dates: start: 20190624
  11. ENTECAVIR [Concomitant]
     Active Substance: ENTECAVIR
     Indication: Product used for unknown indication
     Dosage: UNK
     Dates: start: 20190624
  12. UNSPECIFIED INGREDIENT [Concomitant]
     Active Substance: UNSPECIFIED INGREDIENT
     Indication: Infection prophylaxis
     Dosage: UNK
     Dates: start: 20190624
  13. HUMAN IMMUNOGLOBULIN G [Concomitant]
     Active Substance: HUMAN IMMUNOGLOBULIN G
     Indication: Immunisation
     Dosage: UNK
     Dates: start: 20190624, end: 20190626

REACTIONS (6)
  - Atrial fibrillation [Fatal]
  - Brain natriuretic peptide increased [Unknown]
  - Lung opacity [Unknown]
  - Pleural effusion [Unknown]
  - Cytopenia [Unknown]
  - Hepatic function abnormal [Unknown]

NARRATIVE: CASE EVENT DATE: 20190701
